FAERS Safety Report 4621199-8 (Version None)
Quarter: 2005Q1

REPORT INFORMATION
  Report Type: 
  Country: None (occurrence: None)
  Receive Date: 20050328
  Receipt Date: 20050312
  Transmission Date: 20050727
  Serious: Yes (Other)
  Sender: FDA-Public Use
  Company Number: 2005-0008163

PATIENT
  Age: 69 Year
  Sex: Male
  Weight: 97 kg

DRUGS (5)
  1. HEPSERA [Suspect]
     Indication: HEPATITIS B
     Dosage: 10 MG, 1 IN 1 D ORAL
     Route: 048
     Dates: start: 20041220, end: 20050208
  2. ISOPTIN 80 (VERAPAMIL HYDROCHLORIDE) [Concomitant]
  3. ACETYLSALICYLIC ACID 100 (ACETYLSALICYLIC ACID) [Concomitant]
  4. LOVASTATIN [Concomitant]
  5. BUFLOMEDIL HYDROCHLORIDE (BUFLOMEDIL HYDROCHLORIDE) [Concomitant]

REACTIONS (2)
  - ERYTHEMA [None]
  - PRURITUS [None]
